FAERS Safety Report 7362541-7 (Version None)
Quarter: 2011Q1

REPORT INFORMATION
  Report Type: 
  Country: None (occurrence: None)
  Receive Date: 20110318
  Receipt Date: 20110203
  Transmission Date: 20110831
  Serious: Yes (Hospitalization)
  Sender: FDA-Public Use
  Company Number: CH-AMGEN-CHESP2010009667

PATIENT
  Age: 77 Year
  Sex: Female
  Weight: 60 kg

DRUGS (7)
  1. ALPHAGAN                           /01341101/ [Concomitant]
     Indication: OCULAR HYPERTENSION
     Dosage: UNK UNK, BID
  2. ZANIDIP [Concomitant]
     Indication: HYPERTENSION
     Dosage: 10 MG, UNK
     Route: 048
  3. ASPIRIN [Concomitant]
     Dosage: 100 MG, UNK
  4. SORTIS                             /01326101/ [Concomitant]
     Indication: HYPERCHOLESTEROLAEMIA
     Dosage: 150 MG, UNK
     Route: 048
  5. PROLIA [Suspect]
     Indication: OSTEOPOROSIS POSTMENOPAUSAL
     Dosage: 60 MG, UNK
     Route: 058
     Dates: start: 20101201
  6. HYGROTON [Concomitant]
     Indication: HYPERTENSION
     Dosage: 25 MG, UNK
     Route: 048
  7. ALPHAGAN                           /01341101/ [Concomitant]
     Indication: GLAUCOMA

REACTIONS (8)
  - ABDOMINAL PAIN [None]
  - VOMITING [None]
  - ASTHENIA [None]
  - MALAISE [None]
  - BLOOD SODIUM DECREASED [None]
  - BLOOD POTASSIUM DECREASED [None]
  - DIARRHOEA [None]
  - DECREASED APPETITE [None]
